FAERS Safety Report 8557375-1 (Version None)
Quarter: 2012Q3

REPORT INFORMATION
  Report Type: 
  Country: None (occurrence: None)
  Receive Date: 20120801
  Receipt Date: 20120717
  Transmission Date: 20120928
  Serious: Yes (Hospitalization)
  Sender: FDA-Public Use
  Company Number: US-ROCHE-1089055

PATIENT
  Sex: Female

DRUGS (6)
  1. INSULIN [Concomitant]
     Dosage: 10-20
     Dates: start: 20030101
  2. ASPIRIN [Concomitant]
     Dates: start: 20030101
  3. RANIBIZUMAB [Suspect]
     Indication: DIABETIC RETINAL OEDEMA
     Dosage: DATE OF LAST DOSE PRIOR TO SAE 12/JUN/2012
     Route: 050
  4. SYNTHROID [Concomitant]
     Dates: start: 20050101
  5. LIPITOR [Concomitant]
     Dates: start: 20050101
  6. FOSAMAX [Concomitant]
     Dates: start: 20050101

REACTIONS (1)
  - CARDIAC FAILURE CONGESTIVE [None]
